FAERS Safety Report 7531209-6 (Version None)
Quarter: 2011Q2

REPORT INFORMATION
  Report Type: 
  Country: None (occurrence: None)
  Receive Date: 20110608
  Receipt Date: 20091122
  Transmission Date: 20111010
  Serious: Yes (Death, Other)
  Sender: FDA-Public Use
  Company Number: US-BAYER-200940347NA

PATIENT
  Age: 88 Year
  Sex: Female
  Weight: 63 kg

DRUGS (9)
  1. ATENOLOL [Concomitant]
     Indication: PRODUCT USED FOR UNKNOWN INDICATION
     Dosage: 25 MG, UNK
     Route: 048
  2. LISINOPRIL [Concomitant]
     Indication: PRODUCT USED FOR UNKNOWN INDICATION
     Dosage: UNK
  3. LASIX [Concomitant]
     Dosage: 20 MG, UNK
     Route: 042
  4. TRASYLOL [Suspect]
     Indication: MITRAL VALVE REPLACEMENT
     Dosage: UNK
     Route: 042
     Dates: start: 20070806
  5. TRASYLOL [Suspect]
     Dosage: UNK
     Route: 042
     Dates: start: 20060101
  6. TENORMIN [Concomitant]
     Dosage: 25 MG, QD
  7. DIFLUCAN [Concomitant]
     Dosage: 100 MG, QD
  8. LANOXIN [Concomitant]
     Dosage: .125 MG, QD
  9. LEVAQUIN [Concomitant]

REACTIONS (13)
  - INJURY [None]
  - UNEVALUABLE EVENT [None]
  - RENAL FAILURE [None]
  - DEATH [None]
  - RENAL INJURY [None]
  - ANXIETY [None]
  - PAIN [None]
  - MULTI-ORGAN FAILURE [None]
  - RENAL IMPAIRMENT [None]
  - EMOTIONAL DISTRESS [None]
  - STRESS [None]
  - FEAR [None]
  - ANHEDONIA [None]
